FAERS Safety Report 7568518-0 (Version None)
Quarter: 2011Q2

REPORT INFORMATION
  Report Type: 
  Country: None (occurrence: None)
  Receive Date: 20110617
  Receipt Date: 20110601
  Transmission Date: 20111010
  Serious: Yes (Other)
  Sender: FDA-Public Use
  Company Number: 1000021626

PATIENT
  Sex: Female

DRUGS (1)
  1. ESCITALOPRAM [Suspect]
     Dosage: 20 MG (20 MG,1 IN 1 D),ORAL ; 5 MG (5 MG,1 IN 1 D),ORAL
     Route: 048

REACTIONS (3)
  - WITHDRAWAL SYNDROME [None]
  - VERTIGO [None]
  - DRUG DEPENDENCE [None]
